FAERS Safety Report 17514822 (Version 2)
Quarter: 2020Q1

REPORT INFORMATION
  Report Type: Report from Study
  Country: None (occurrence: CO)
  Receive Date: 20200309
  Receipt Date: 20200329
  Transmission Date: 20200409
  Serious: Yes (Hospitalization)
  Sender: FDA-Public Use
  Company Number: CO-ABBVIE-20K-036-3310645-00

PATIENT
  Age: 48 Year
  Sex: Male
  Weight: 58 kg

DRUGS (3)
  1. ZEMPLAR [Suspect]
     Active Substance: PARICALCITOL
     Indication: HYPERPARATHYROIDISM SECONDARY
     Dosage: POST DIALYSIS
     Route: 042
     Dates: start: 20150123, end: 20191212
  2. AMLODIPINE [Concomitant]
     Active Substance: AMLODIPINE BESYLATE
     Indication: HYPERTENSION
     Route: 048
     Dates: start: 20200305
  3. TRAMADOL. [Concomitant]
     Active Substance: TRAMADOL
     Indication: FRACTURE
     Dosage: AT NIGHT
     Dates: start: 20200305, end: 20200305

REACTIONS (4)
  - X-ray limb abnormal [Not Recovered/Not Resolved]
  - Tibia fracture [Recovering/Resolving]
  - Road traffic accident [Recovering/Resolving]
  - Fibula fracture [Recovering/Resolving]

NARRATIVE: CASE EVENT DATE: 20200305
